FAERS Safety Report 22091415 (Version 1)
Quarter: 2023Q1

REPORT INFORMATION
  Report Type: Other
  Country: HN (occurrence: HN)
  Receive Date: 20230314
  Receipt Date: 20230314
  Transmission Date: 20230418
  Serious: No
  Sender: FDA-Public Use
  Company Number: HN-TOLMAR, INC.-23HN038986

PATIENT
  Sex: Female

DRUGS (2)
  1. ELIGARD [Suspect]
     Active Substance: LEUPROLIDE ACETATE
     Indication: Precocious puberty
     Dosage: 45 MILLIGRAM, Q 6 MONTH
     Route: 058
  2. ELIGARD [Suspect]
     Active Substance: LEUPROLIDE ACETATE
     Dosage: 45 MILLIGRAM, Q 6 MONTH
     Route: 058
     Dates: start: 202211

REACTIONS (3)
  - Vaginal discharge [Recovered/Resolved]
  - Product dose omission issue [Recovered/Resolved]
  - Breast enlargement [Recovered/Resolved]
